FAERS Safety Report 21999549 (Version 1)
Quarter: 2023Q1

REPORT INFORMATION
  Report Type: Spontaneous
  Country: US (occurrence: US)
  Receive Date: 20230216
  Receipt Date: 20230216
  Transmission Date: 20230418
  Serious: No
  Sender: FDA-Public Use
  Company Number: US-GSK-US2023018864

PATIENT
  Sex: Female

DRUGS (10)
  1. BENLYSTA [Suspect]
     Active Substance: BELIMUMAB
     Indication: Lupus nephritis
     Dosage: 200 MG
     Route: 058
  2. BENLYSTA [Suspect]
     Active Substance: BELIMUMAB
  3. BENLYSTA [Suspect]
     Active Substance: BELIMUMAB
     Indication: Lupus nephritis
     Dosage: 200 MG
     Route: 058
  4. GABAPENTIN [Concomitant]
     Active Substance: GABAPENTIN
     Indication: Neuralgia
     Dosage: 6 DF, QD
     Dates: start: 20170201
  5. CEFIXIME [Concomitant]
     Active Substance: CEFIXIME
     Indication: Muscle spasms
     Dosage: 10 MG
     Dates: start: 20170201
  6. CELLCEPT [Concomitant]
     Active Substance: MYCOPHENOLATE MOFETIL
     Indication: Product used for unknown indication
     Dosage: 500 MG, QD
     Dates: start: 20190201
  7. PREDNISONE [Concomitant]
     Active Substance: PREDNISONE
     Indication: Inflammation
     Dosage: 1 MG
     Dates: start: 20190201
  8. CLOZAPINE [Concomitant]
     Active Substance: CLOZAPINE
     Indication: Anxiety
     Dosage: 1 MG, BID
     Dates: start: 20160101
  9. TRAMADOL [Concomitant]
     Active Substance: TRAMADOL
     Indication: Pain
     Dosage: 50 MG, QID
     Dates: start: 20180201
  10. CYMBALTA [Concomitant]
     Active Substance: DULOXETINE HYDROCHLORIDE
     Indication: Myalgia
     Dosage: 60 MG, BID
     Dates: start: 20160201

REACTIONS (2)
  - Arthralgia [Unknown]
  - Product dose omission issue [Not Recovered/Not Resolved]

NARRATIVE: CASE EVENT DATE: 20230101
